FAERS Safety Report 6127295-0 (Version None)
Quarter: 2009Q1

REPORT INFORMATION
  Report Type: 
  Country: None (occurrence: None)
  Receive Date: 20090319
  Receipt Date: 20090311
  Transmission Date: 20090719
  Serious: Yes (Death)
  Sender: FDA-Public Use
  Company Number: GXBR2009US00747

PATIENT
  Age: 58 Year
  Sex: Female

DRUGS (9)
  1. ALPRAZOLAM [Suspect]
     Dosage: 1 MG, PRN, ORAL
     Route: 048
  2. PROMETHAZINE HCL [Suspect]
     Dosage: 25 MG, PRN, ORAL
     Route: 048
  3. ZOLPIDEM TARTRATE [Suspect]
     Indication: INSOMNIA
     Dosage: 10 MG, QHS, ORAL
     Route: 048
  4. OXYMORPHONE HCL [Suspect]
     Indication: BACK PAIN
     Dosage: 10 MG, BID, ORAL
     Route: 048
     Dates: start: 20070619
  5. PROZAC [Suspect]
     Dosage: ORAL
     Route: 048
  6. TOPAMAX [Suspect]
     Indication: INTERCOSTAL NEURALGIA
     Dosage: 50 MG, BID, ORAL
     Route: 048
  7. MACROBID [Suspect]
  8. NEXIUM [Suspect]
     Dosage: 40 MG
  9. PROTONIX [Suspect]
     Dosage: ORAL
     Route: 048

REACTIONS (3)
  - CARDIAC ARREST [None]
  - CHEST PAIN [None]
  - UNRESPONSIVE TO STIMULI [None]
